FAERS Safety Report 6863183-X (Version None)
Quarter: 2010Q3

REPORT INFORMATION
  Report Type: 
  Country: None (occurrence: None)
  Receive Date: 20100721
  Receipt Date: 20100712
  Transmission Date: 20110219
  Serious: Yes (Hospitalization)
  Sender: FDA-Public Use
  Company Number: IT-BRISTOL-MYERS SQUIBB COMPANY-15201445

PATIENT
  Age: 74 Year
  Sex: Male
  Weight: 50 kg

DRUGS (4)
  1. CETUXIMAB [Suspect]
     Indication: HEAD AND NECK CANCER
     Dosage: CETUXIMAB 5MG/ML
     Route: 042
     Dates: start: 20100308, end: 20100601
  2. CISPLATIN [Suspect]
     Indication: HEAD AND NECK CANCER
     Route: 042
     Dates: start: 20100308, end: 20100524
  3. CILENGITIDE [Suspect]
     Indication: HEAD AND NECK CANCER
     Route: 042
     Dates: start: 20100308, end: 20100601
  4. FLUOROURACIL [Suspect]
     Indication: HEAD AND NECK CANCER
     Dosage: CONTINUOUS INFUSION FROM DAY 1 TO DAY 4 OF CYCLE.
     Route: 042
     Dates: start: 20100308, end: 20100524

REACTIONS (1)
  - PULMONARY EMBOLISM [None]
